FAERS Safety Report 17655955 (Version 1)
Quarter: 2020Q2

REPORT INFORMATION
  Report Type: Spontaneous
  Country: DE (occurrence: DE)
  Receive Date: 20200410
  Receipt Date: 20200410
  Transmission Date: 20200713
  Serious: Yes (Hospitalization)
  Sender: FDA-Public Use
  Company Number: DE-TEVA-2020-DE-1221943

PATIENT
  Age: 75 Year
  Sex: Male

DRUGS (12)
  1. RIVAROXABAN [Concomitant]
     Active Substance: RIVAROXABAN
     Dosage: 20 MILLIGRAM DAILY;
  2. INSUMAN [Concomitant]
     Active Substance: INSULIN HUMAN
     Dosage: ACCORDING TO THE SCHEME
  3. FUROSEMID [Concomitant]
     Active Substance: FUROSEMIDE
     Dosage: 80 MILLIGRAM DAILY;
  4. BISOPROLOL [Suspect]
     Active Substance: BISOPROLOL
     Dosage: 10 MILLIGRAM DAILY;
  5. RAMIPRIL. [Concomitant]
     Active Substance: RAMIPRIL
     Dosage: 5 MILLIGRAM DAILY;
  6. ATORVASTATIN [Concomitant]
     Active Substance: ATORVASTATIN
     Dosage: 20 MILLIGRAM DAILY;
  7. DIGITOXIN [Concomitant]
     Active Substance: DIGITOXIN
     Dosage: .07 MILLIGRAM DAILY;
  8. BECLOMETASON [Concomitant]
     Active Substance: BECLOMETHASONE DIPROPIONATE
     Dosage: 1-0-1-0, MDI
  9. APIDRA [Concomitant]
     Active Substance: INSULIN GLULISINE
     Dosage: ACCORDING TO THE SCHEME
  10. AMITRIPTYLIN [Concomitant]
     Active Substance: AMITRIPTYLINE
     Dosage: 25 MILLIGRAM DAILY;
  11. ALLOPURINOL. [Concomitant]
     Active Substance: ALLOPURINOL
     Dosage: 300 MILLIGRAM DAILY;
  12. TIOTROPIUMBROMID [Concomitant]
     Dosage: 18 MICROGRAM DAILY;

REACTIONS (3)
  - Waist circumference increased [Unknown]
  - Oedema peripheral [Unknown]
  - Dyspnoea [Unknown]
